FAERS Safety Report 9684185 (Version 2)
Quarter: 2014Q1

REPORT INFORMATION
  Report Type: Report from Study
  Country: NL (occurrence: NL)
  Receive Date: 20131112
  Receipt Date: 20140214
  Transmission Date: 20141002
  Serious: Yes (Hospitalization, Other)
  Sender: FDA-Public Use
  Company Number: NL-ABBVIE-13P-114-1167279-00

PATIENT
  Age: 40 Year
  Sex: Female

DRUGS (1)
  1. LUCRIN DEPOT [Suspect]
     Indication: BREAST CANCER FEMALE
     Route: 058
     Dates: start: 20130808

REACTIONS (2)
  - Oophorectomy [Unknown]
  - Malaise [Unknown]
